FAERS Safety Report 9123082 (Version 1)
Quarter: 2013Q1

REPORT INFORMATION
  Report Type: Spontaneous
  Country: CA (occurrence: CA)
  Receive Date: 20130227
  Receipt Date: 20130227
  Transmission Date: 20140127
  Serious: Yes (Other)
  Sender: FDA-Public Use
  Company Number: CA-ELI_LILLY_AND_COMPANY-CA201302007706

PATIENT
  Age: 77 Year
  Sex: Female

DRUGS (12)
  1. FORTEO [Suspect]
     Indication: OSTEOPOROSIS
     Dosage: 20MCG, ONCE DAILY
     Route: 058
     Dates: start: 20110608
  2. ATACAND [Concomitant]
  3. ATENOLOL [Concomitant]
  4. LASIX [Concomitant]
  5. CARBOCAL [Concomitant]
  6. CRESTON [Concomitant]
  7. FOLIC ACID [Concomitant]
  8. VITAMIN D [Concomitant]
  9. ELAVIL [Concomitant]
  10. DOMPERIDONE [Concomitant]
  11. PANTOLOC                           /01263204/ [Concomitant]
  12. ASAPHEN [Concomitant]

REACTIONS (2)
  - Foot fracture [Recovered/Resolved]
  - Fall [Recovered/Resolved]
